FAERS Safety Report 9820194 (Version 1)
Quarter: 2014Q1

REPORT INFORMATION
  Report Type: Spontaneous
  Country: US (occurrence: None)
  Receive Date: 20140113
  Receipt Date: 20140113
  Transmission Date: 20141002
  Serious: Yes (Other)
  Sender: FDA-Public Use
  Company Number: None

PATIENT
  Sex: Female

DRUGS (7)
  1. INVEGA [Suspect]
  2. VITAMIN C [Concomitant]
  3. VITAMIN B [Concomitant]
  4. VITAMIN D [Concomitant]
  5. COENZYME Q10 [Concomitant]
  6. CALCIUM [Concomitant]
  7. GREEN COFFEE EXTRACT [Concomitant]

REACTIONS (3)
  - Drug interaction [None]
  - Hormone level abnormal [None]
  - Menorrhagia [None]
